FAERS Safety Report 14835770 (Version 2)
Quarter: 2018Q2

REPORT INFORMATION
  Report Type: Other
  Country: CA (occurrence: CA)
  Receive Date: 20180502
  Receipt Date: 20180530
  Transmission Date: 20180711
  Serious: Yes (Other)
  Sender: FDA-Public Use
  Company Number: CA-APOTEX-2018AP010989

PATIENT
  Age: 33 Year
  Sex: Female

DRUGS (4)
  1. ABILIFY [Suspect]
     Active Substance: ARIPIPRAZOLE
     Indication: SCHIZOPHRENIA
     Dosage: UNK
     Route: 048
  2. FLUPHENAZINE [Suspect]
     Active Substance: FLUPHENAZINE
     Indication: SCHIZOPHRENIA
     Dosage: UNK
     Route: 048
  3. SAPHRIS [Suspect]
     Active Substance: ASENAPINE MALEATE
     Indication: SCHIZOPHRENIA
     Dosage: UNK
     Route: 065
  4. HALDOL [Suspect]
     Active Substance: HALOPERIDOL
     Indication: SCHIZOPHRENIA
     Dosage: UNK
     Route: 065

REACTIONS (11)
  - Drug effect incomplete [Unknown]
  - Parkinsonism [Unknown]
  - Anosognosia [Unknown]
  - Hypercholesterolaemia [Unknown]
  - Orthostatic hypertension [Unknown]
  - Sedation [Unknown]
  - Schizophrenia [Unknown]
  - Suicide attempt [Unknown]
  - Akathisia [Unknown]
  - Dystonia [Unknown]
  - Weight increased [Unknown]
